FAERS Safety Report 15493795 (Version 2)
Quarter: 2018Q4

REPORT INFORMATION
  Report Type: Spontaneous
  Country: US (occurrence: US)
  Receive Date: 20181012
  Receipt Date: 20181031
  Transmission Date: 20190205
  Serious: Yes (Hospitalization, Other)
  Sender: FDA-Public Use
  Company Number: US-DSJP-DSU-2017-148656

PATIENT

DRUGS (2)
  1. BENICAR HCT [Suspect]
     Active Substance: HYDROCHLOROTHIAZIDE\OLMESARTAN MEDOXOMIL
     Indication: HYPERTENSION
     Dosage: 40/25 MG, QD
     Dates: start: 200301, end: 20160602
  2. BENICAR [Suspect]
     Active Substance: OLMESARTAN MEDOXOMIL
     Indication: PRODUCT USED FOR UNKNOWN INDICATION
     Dosage: 40 MG, UNK
     Dates: start: 200301, end: 20160602

REACTIONS (7)
  - Chronic kidney disease [Unknown]
  - Diarrhoea [Recovered/Resolved]
  - Diverticulitis [Unknown]
  - Abdominal pain [Recovered/Resolved]
  - Gastritis [Unknown]
  - Gastrooesophageal reflux disease [Unknown]
  - Diverticulum [Unknown]

NARRATIVE: CASE EVENT DATE: 20110106
